FAERS Safety Report 6522889-2 (Version None)
Quarter: 2009Q4

REPORT INFORMATION
  Report Type: 
  Country: None (occurrence: None)
  Receive Date: 20091222
  Receipt Date: 20091204
  Transmission Date: 20100525
  Serious: Yes (Hospitalization)
  Sender: FDA-Public Use
  Company Number: 2008000882

PATIENT
  Age: 52 Year
  Sex: Male

DRUGS (4)
  1. ERLOTINIB (ERLOTINIB HCL) [Suspect]
     Indication: LUNG ADENOCARCINOMA
     Dosage: 150 MG, QD, ORAL
     Route: 048
     Dates: start: 20080213, end: 20080314
  2. URSODIOL [Concomitant]
  3. HOCHU-EKKI-TO [Concomitant]
  4. KETOPROFEN [Concomitant]

REACTIONS (4)
  - CONVULSION [None]
  - DECREASED APPETITE [None]
  - MALIGNANT NEOPLASM PROGRESSION [None]
  - NON-SMALL CELL LUNG CANCER [None]
